FAERS Safety Report 6665269-1 (Version None)
Quarter: 2010Q2

REPORT INFORMATION
  Report Type: 
  Country: None (occurrence: None)
  Receive Date: 20100402
  Receipt Date: 20100319
  Transmission Date: 20101027
  Serious: Yes (Other)
  Sender: FDA-Public Use
  Company Number: US-ELI_LILLY_AND_COMPANY-US201003007643

PATIENT
  Sex: Female

DRUGS (15)
  1. FORTEO [Suspect]
     Indication: OSTEOPOROSIS
     Dosage: 20 UG, DAILY (1/D)
     Dates: start: 20091101
  2. METFORMIN (GLUCOPHAGE) [Concomitant]
     Dosage: 1000 MG, 2/D ONCE IN THE AM AND ONCE IN THE PM
  3. SYNTHROID [Concomitant]
     Dosage: 0.25 MG, DAILY (1/D)
  4. DITROPAN [Concomitant]
     Dosage: 10 MG, DAILY (1/D)
  5. DIOVAN [Concomitant]
     Dosage: 80 MG, DAILY (1/D) AT NOON
  6. LYRICA [Concomitant]
     Dosage: 75 MG, 2/D ONCE IN THE AM AND ONCE IN THE PM
  7. ZETIA [Concomitant]
     Dosage: 10 MG, DAILY (1/D)
  8. LEXAPRO [Concomitant]
     Dosage: 10 MG, DAILY (1/D)
  9. CALTRATE 600 + D [Concomitant]
     Dosage: UNK, 2/D, ONCE IN THE AM AND ONCE IN THE PM
  10. TYLENOL (CAPLET) [Concomitant]
     Dosage: 325 OR 500 MG, AS NEEDED
  11. LEVEMIR [Concomitant]
     Dosage: UNK, EACH EVENING
  12. CENTRUM A TO ZINC [Concomitant]
  13. TETRACYCLINE [Concomitant]
     Dosage: 500 MG, 4/D
  14. AMOXICILLIN [Concomitant]
     Dates: start: 20100201
  15. TAMOXIFEN CITRATE [Concomitant]
     Dosage: UNK, DAILY (1/D)

REACTIONS (7)
  - BREAST CANCER [None]
  - CHOLECYSTECTOMY [None]
  - INJECTION SITE ERYTHEMA [None]
  - INJECTION SITE HAEMATOMA [None]
  - INJECTION SITE PAIN [None]
  - POST PROCEDURAL COMPLICATION [None]
  - PRURITUS GENERALISED [None]
